FAERS Safety Report 21352015 (Version 4)
Quarter: 2022Q4

REPORT INFORMATION
  Report Type: Report from Study
  Country: CA (occurrence: CA)
  Receive Date: 20220920
  Receipt Date: 20221209
  Transmission Date: 20230112
  Serious: Yes (Hospitalization)
  Sender: FDA-Public Use
  Company Number: CA-BRISTOL-MYERS SQUIBB COMPANY-2022-076433

PATIENT
  Age: 53 Year
  Sex: Male
  Weight: 60.78 kg

DRUGS (1)
  1. OPDIVO [Suspect]
     Active Substance: NIVOLUMAB
     Indication: Oesophageal adenocarcinoma
     Route: 042
     Dates: start: 20220606

REACTIONS (9)
  - Heart rate increased [Unknown]
  - Oropharyngeal pain [Recovering/Resolving]
  - Weight increased [Recovering/Resolving]
  - Cough [Recovered/Resolved]
  - Abdominal pain [Recovering/Resolving]
  - Headache [Recovered/Resolved]
  - Vomiting [Recovered/Resolved]
  - Fatigue [Recovering/Resolving]
  - Incision site swelling [Unknown]

NARRATIVE: CASE EVENT DATE: 20210101
